FAERS Safety Report 8623302 (Version 2)
Quarter: 2012Q4

REPORT INFORMATION
  Report Type: 
  Country: NL (occurrence: NL)
  Receive Date: 20120620
  Receipt Date: 20120917
  Transmission Date: 20130627
  Serious: Yes (Other)
  Sender: FDA-Public Use
  Company Number: PHHY2012NL052170

PATIENT
  Sex: Male

DRUGS (3)
  1. ZOMETA [Suspect]
     Indication: PROSTATE CANCER METASTATIC
     Dosage: 4 mg/100 ml, 1x per 28 days
     Dates: start: 20110817
  2. ZOMETA [Suspect]
     Dosage: 4 mg/100 ml, 1x per 28 days
     Dates: start: 20120426
  3. ZOMETA [Suspect]
     Dosage: 4 mg/100 ml, 1x per 28 days
     Dates: start: 20120524

REACTIONS (2)
  - Terminal state [Unknown]
  - General physical health deterioration [Unknown]
